FAERS Safety Report 7715957-0 (Version None)
Quarter: 2011Q3

REPORT INFORMATION
  Report Type: 
  Country: None (occurrence: None)
  Receive Date: 20110829
  Receipt Date: 20110817
  Transmission Date: 20111222
  Serious: Yes (Other)
  Sender: FDA-Public Use
  Company Number: CA-ELI_LILLY_AND_COMPANY-CA201108005798

PATIENT
  Age: 76 Year
  Sex: Female

DRUGS (8)
  1. FORTEO [Suspect]
     Indication: OSTEOPOROSIS
     Dosage: 20 UG, QD
     Route: 058
     Dates: start: 20110809
  2. CALCIUM CARBONATE [Concomitant]
  3. CITALOPRAM [Concomitant]
  4. SYNTHROID [Concomitant]
  5. SUPEUDOL [Concomitant]
  6. MICARDIS [Concomitant]
  7. VITAMIN D [Concomitant]
  8. METOPROLOL TARTRATE [Concomitant]

REACTIONS (1)
  - HALLUCINATION [None]
